FAERS Safety Report 9696005 (Version 1)
Quarter: 2013Q4

REPORT INFORMATION
  Report Type: Spontaneous
  Country: US (occurrence: None)
  Receive Date: 20131115
  Receipt Date: 20131115
  Transmission Date: 20140711
  Serious: Yes (Life-Threatening, Hospitalization)
  Sender: FDA-Public Use
  Company Number: 2013P1020885

PATIENT
  Age: 53 Year
  Sex: Male

DRUGS (1)
  1. DONEPEZIL [Suspect]
     Indication: AMNESIA

REACTIONS (5)
  - Accidental overdose [None]
  - Confusional state [None]
  - Somnolence [None]
  - Hyperhidrosis [None]
  - Sinus bradycardia [None]
